FAERS Safety Report 6909096-6 (Version None)
Quarter: 2010Q3

REPORT INFORMATION
  Report Type: 
  Country: None (occurrence: None)
  Receive Date: 20100805
  Receipt Date: 20100730
  Transmission Date: 20110219
  Serious: Yes (Other)
  Sender: FDA-Public Use
  Company Number: US-RB-005820-10

PATIENT
  Age: 43 Year
  Sex: Male

DRUGS (2)
  1. SUBOXONE [Suspect]
     Indication: DRUG DEPENDENCE
     Dosage: UNKNOWN DOSING DETAILS
     Route: 060
     Dates: start: 20100101, end: 20100601
  2. SUBOXONE [Suspect]
     Route: 060
     Dates: start: 20100601

REACTIONS (8)
  - BACK PAIN [None]
  - DRUG WITHDRAWAL SYNDROME [None]
  - EUPHORIC MOOD [None]
  - FATIGUE [None]
  - HALLUCINATION, VISUAL [None]
  - HYPERHIDROSIS [None]
  - INSOMNIA [None]
  - RESTLESSNESS [None]
